FAERS Safety Report 13775689 (Version 2)
Quarter: 2017Q3

REPORT INFORMATION
  Report Type: Spontaneous
  Country: IT (occurrence: IT)
  Receive Date: 20170720
  Receipt Date: 20170811
  Transmission Date: 20171127
  Serious: Yes (Hospitalization)
  Sender: FDA-Public Use
  Company Number: IT-TEVA-788918ACC

PATIENT
  Age: 56 Year
  Sex: Male
  Weight: 82 kg

DRUGS (4)
  1. FLUOROURACILE AHCL [Suspect]
     Active Substance: FLUOROURACIL
     Route: 040
     Dates: start: 20160914, end: 20170615
  2. FLUOROURACILE AHCL [Suspect]
     Active Substance: FLUOROURACIL
     Route: 042
     Dates: start: 20160914, end: 20170615
  3. IRINOTECAN [Suspect]
     Active Substance: IRINOTECAN
     Indication: COLON CANCER
     Route: 042
     Dates: start: 20160914, end: 20170615
  4. ZALTRAP [Suspect]
     Active Substance: ZIV-AFLIBERCEPT
     Indication: COLON CANCER
     Route: 042
     Dates: start: 20160914, end: 20170615

REACTIONS (2)
  - Pyrexia [Recovering/Resolving]
  - Abdominal abscess [Recovering/Resolving]

NARRATIVE: CASE EVENT DATE: 20170628
